FAERS Safety Report 10287461 (Version 1)
Quarter: 2014Q3

REPORT INFORMATION
  Report Type: Spontaneous
  Country: US (occurrence: US)
  Receive Date: 20140709
  Receipt Date: 20140709
  Transmission Date: 20150326
  Serious: Yes (Other)
  Sender: FDA-Public Use
  Company Number: US-GLAXOSMITHKLINE-A1080163A

PATIENT
  Sex: Female

DRUGS (1)
  1. FLONASE [Suspect]
     Active Substance: FLUTICASONE PROPIONATE
     Indication: PRODUCT USED FOR UNKNOWN INDICATION
     Dosage: 50MCG UNKNOWN
     Route: 045
     Dates: start: 20040610

REACTIONS (6)
  - Vagal nerve stimulator implantation [Unknown]
  - Knee operation [Unknown]
  - Neck surgery [Unknown]
  - Impaired work ability [Unknown]
  - Epilepsy [Unknown]
  - Surgery [Unknown]
